FAERS Safety Report 6876727-9 (Version None)
Quarter: 2010Q3

REPORT INFORMATION
  Report Type: 
  Country: None (occurrence: None)
  Receive Date: 20100727
  Receipt Date: 20100720
  Transmission Date: 20110219
  Serious: Yes (Life-Threatening, Hospitalization)
  Sender: FDA-Public Use
  Company Number: FR-ROCHE-708989

PATIENT
  Sex: Female

DRUGS (8)
  1. ROACTEMRA [Suspect]
     Indication: RHEUMATOID ARTHRITIS
     Dosage: DOSE: 8 MG/KG. FORM: INFUSION.
     Route: 042
     Dates: start: 20100318
  2. ROACTEMRA [Suspect]
     Route: 042
     Dates: start: 20100414
  3. ROACTEMRA [Suspect]
     Route: 042
     Dates: start: 20100512
  4. CORTANCYL [Suspect]
     Indication: PRODUCT USED FOR UNKNOWN INDICATION
     Route: 048
  5. METHOTREXATE [Suspect]
     Indication: PRODUCT USED FOR UNKNOWN INDICATION
     Route: 048
  6. SPECIAFOLDINE [Concomitant]
     Route: 048
  7. NEXIUM [Concomitant]
  8. PROZAC [Concomitant]

REACTIONS (2)
  - APPENDICITIS [None]
  - PERITONITIS [None]
